FAERS Safety Report 15562165 (Version 4)
Quarter: 2018Q4

REPORT INFORMATION
  Report Type: Spontaneous
  Country: JP (occurrence: JP)
  Receive Date: 20181029
  Receipt Date: 20181220
  Transmission Date: 20190205
  Serious: Yes (Hospitalization, Other)
  Sender: FDA-Public Use
  Company Number: JP-ELI_LILLY_AND_COMPANY-JP201810009124

PATIENT
  Age: 58 Year
  Sex: Female
  Weight: 44 kg

DRUGS (14)
  1. 5 FU [Concomitant]
     Active Substance: FLUOROURACIL
     Indication: COLORECTAL ADENOCARCINOMA
     Dosage: 2900 MG, OTHER
     Route: 041
     Dates: start: 20180706, end: 20180921
  2. APREPITANT. [Concomitant]
     Active Substance: APREPITANT
     Dosage: 80 MG, DAILY
     Route: 048
     Dates: start: 20180707, end: 20180923
  3. CYRAMZA [Suspect]
     Active Substance: RAMUCIRUMAB
     Indication: COLORECTAL ADENOCARCINOMA
     Dosage: 220 MG, OTHER
     Route: 041
     Dates: start: 20180706, end: 20180720
  4. DEXAMETHASONE SODIUM PHOSPHATE. [Concomitant]
     Active Substance: DEXAMETHASONE SODIUM PHOSPHATE
     Indication: PROPHYLAXIS
     Dosage: 2 MG, DAILY
     Route: 048
     Dates: start: 20180707, end: 20180923
  5. CANDESARTAN. [Concomitant]
     Active Substance: CANDESARTAN
     Dosage: 80 MG, DAILY
     Route: 048
  6. CYRAMZA [Suspect]
     Active Substance: RAMUCIRUMAB
     Dosage: 220 MG, OTHER
     Route: 041
     Dates: start: 20180921, end: 20180921
  7. FUROSEMIDE. [Concomitant]
     Active Substance: FUROSEMIDE
     Dosage: 20 MG, DAILY
     Route: 041
     Dates: start: 20181111
  8. APREPITANT. [Concomitant]
     Active Substance: APREPITANT
     Indication: PROPHYLAXIS
     Dosage: 125 MG, DAILY
     Route: 048
     Dates: start: 20180706, end: 20180921
  9. DEXAMETHASONE SODIUM PHOSPHATE. [Concomitant]
     Active Substance: DEXAMETHASONE SODIUM PHOSPHATE
     Indication: PROPHYLAXIS
     Dosage: 6.60 MG, DAILY
     Route: 041
     Dates: start: 20180706, end: 20180921
  10. IRINOTECAN [Concomitant]
     Active Substance: IRINOTECAN
     Indication: COLORECTAL ADENOCARCINOMA
     Dosage: 80 MG, OTHER
     Route: 041
     Dates: start: 20180706, end: 20180720
  11. CALCIUM LEVOFOLINATE [Concomitant]
     Active Substance: LEVOLEUCOVORIN CALCIUM
     Indication: COLORECTAL ADENOCARCINOMA
     Dosage: 250 MG, OTHER
     Route: 041
     Dates: start: 20180706, end: 20180921
  12. IRINOTECAN [Concomitant]
     Active Substance: IRINOTECAN
     Dosage: 70 MG, OTHER
     Route: 041
     Dates: start: 20180810, end: 20180921
  13. ALOXI [Concomitant]
     Active Substance: PALONOSETRON HYDROCHLORIDE
     Indication: PROPHYLAXIS
     Dosage: 0.75 MG, DAILY
     Route: 041
     Dates: start: 20180706, end: 20180921
  14. FUROSEMIDE. [Concomitant]
     Active Substance: FUROSEMIDE
     Dosage: 20 MG, DAILY
     Route: 048

REACTIONS (3)
  - Cardiac failure [Recovering/Resolving]
  - Oedema [Unknown]
  - Proteinuria [Unknown]

NARRATIVE: CASE EVENT DATE: 20180810
